FAERS Safety Report 9364229 (Version 2)
Quarter: 2013Q3

REPORT INFORMATION
  Report Type: Spontaneous
  Country: IT (occurrence: IT)
  Receive Date: 20130624
  Receipt Date: 20130708
  Transmission Date: 20140515
  Serious: Yes (Hospitalization)
  Sender: FDA-Public Use
  Company Number: IT-BAYER-2013-074610

PATIENT
  Age: 67 Year
  Sex: Male

DRUGS (3)
  1. CARDIOASPIRIN [Suspect]
     Indication: THROMBOSIS PROPHYLAXIS
     Dosage: 500 MG, ONCE
     Route: 048
     Dates: start: 20130507, end: 20130507
  2. RAMIPRIL [Suspect]
     Indication: HYPERTENSION
     Dosage: 50 MG, ONCE
     Route: 048
     Dates: start: 20130507, end: 20130507
  3. HALCION [Suspect]
     Indication: ANXIETY
     Dosage: 2250 ?G, ONCE
     Route: 048
     Dates: start: 20130507, end: 20130507

REACTIONS (3)
  - Sopor [Recovered/Resolved]
  - Drug abuse [Recovered/Resolved]
  - Bradycardia [Recovered/Resolved]
